FAERS Safety Report 17532988 (Version 1)
Quarter: 2020Q1

REPORT INFORMATION
  Report Type: Other
  Country: GB (occurrence: GB)
  Receive Date: 20200312
  Receipt Date: 20200312
  Transmission Date: 20200409
  Serious: Yes (Life-Threatening)
  Sender: FDA-Public Use
  Company Number: GB-GLENMARK PHARMACEUTICALS-2020GMK046566

PATIENT

DRUGS (1)
  1. MONTELUKAST SODIUM. [Suspect]
     Active Substance: MONTELUKAST SODIUM
     Indication: ASTHMA
     Dosage: 5 MG, OD
     Route: 048
     Dates: start: 20120903, end: 20191026

REACTIONS (7)
  - Poor quality sleep [Recovered/Resolved with Sequelae]
  - Aggression [Recovered/Resolved with Sequelae]
  - Depression [Recovered/Resolved with Sequelae]
  - Irritability [Recovered/Resolved with Sequelae]
  - Anxiety [Unknown]
  - Suicidal ideation [Recovered/Resolved with Sequelae]
  - Physical abuse [Unknown]

NARRATIVE: CASE EVENT DATE: 20130101
